FAERS Safety Report 4972789-4 (Version None)
Quarter: 2006Q2

REPORT INFORMATION
  Report Type: 
  Country: None (occurrence: None)
  Receive Date: 20060410
  Receipt Date: 20060323
  Transmission Date: 20061013
  Serious: Yes (Other)
  Sender: FDA-Public Use
  Company Number: TRP_0737_2006

PATIENT
  Age: 52 Year
  Sex: Female
  Weight: 60.3284 kg

DRUGS (2)
  1. RIBASPHERE [Suspect]
     Indication: HEPATITIS C
     Dosage: DF PO
     Route: 048
  2. PEG-INTRON [Suspect]
     Indication: HEPATITIS C
     Dosage: DF SC
     Route: 058

REACTIONS (9)
  - BACK PAIN [None]
  - EPISTAXIS [None]
  - HAEMORRHAGE SUBCUTANEOUS [None]
  - MUSCLE SPASMS [None]
  - PLATELET COUNT DECREASED [None]
  - PRURITUS [None]
  - SKIN DISORDER [None]
  - STOMATITIS [None]
  - WEIGHT INCREASED [None]
